FAERS Safety Report 4961678-7 (Version None)
Quarter: 2006Q2

REPORT INFORMATION
  Report Type: 
  Country: None (occurrence: None)
  Receive Date: 20060404
  Receipt Date: 20060328
  Transmission Date: 20061013
  Serious: Yes (Death, Hospitalization)
  Sender: FDA-Public Use
  Company Number: PHEH2006US04079

PATIENT
  Age: 39 Year
  Sex: Male

DRUGS (3)
  1. EXJADE [Suspect]
     Indication: BLOOD IRON INCREASED
     Dosage: 1750 MG, QD
     Dates: start: 20060308, end: 20060322
  2. PREDNISONE [Concomitant]
     Dosage: 5 MG, QD
  3. TESTOSTERONE [Concomitant]

REACTIONS (35)
  - ACUTE RESPIRATORY DISTRESS SYNDROME [None]
  - ALANINE AMINOTRANSFERASE INCREASED [None]
  - ANAEMIA [None]
  - ASPARTATE AMINOTRANSFERASE INCREASED [None]
  - BLOOD CREATININE INCREASED [None]
  - BLOOD POTASSIUM DECREASED [None]
  - BLOOD SODIUM DECREASED [None]
  - BLOOD UREA INCREASED [None]
  - BONE MARROW FAILURE [None]
  - BRADYCARDIA [None]
  - BREATH SOUNDS ABNORMAL [None]
  - CARDIAC ARREST [None]
  - CHILLS [None]
  - COAGULOPATHY [None]
  - CONDITION AGGRAVATED [None]
  - CONGENITAL APLASTIC ANAEMIA [None]
  - DIARRHOEA [None]
  - DYSPNOEA [None]
  - HEADACHE [None]
  - INCREASED BRONCHIAL SECRETION [None]
  - INSOMNIA [None]
  - LEUKOPENIA [None]
  - LUNG DISORDER [None]
  - METABOLIC ACIDOSIS [None]
  - MYELODYSPLASTIC SYNDROME [None]
  - NAUSEA [None]
  - PNEUMONIA [None]
  - PULMONARY OEDEMA [None]
  - PYREXIA [None]
  - RENAL FAILURE ACUTE [None]
  - RENAL TUBULAR NECROSIS [None]
  - SEPSIS [None]
  - TACHYCARDIA [None]
  - THROMBOCYTOPENIA [None]
  - VOMITING [None]
